FAERS Safety Report 11587198 (Version 1)
Quarter: 2015Q3

REPORT INFORMATION
  Report Type: Spontaneous
  Country: US (occurrence: US)
  Receive Date: 20150916
  Receipt Date: 20150916
  Transmission Date: 20151125
  Serious: No
  Sender: FDA-Public Use
  Company Number: US-ELI_LILLY_AND_COMPANY-US200802002776

PATIENT
  Sex: Female

DRUGS (5)
  1. FORTEO [Suspect]
     Active Substance: TERIPARATIDE
     Indication: OSTEOPOROSIS
     Dates: start: 20080118
  2. CALCIUM D [Concomitant]
     Active Substance: CALCIUM\VITAMIN D
     Dosage: UNK, 2/D
  3. QUESTRAN [Concomitant]
     Active Substance: CHOLESTYRAMINE
  4. VITAMIN D [Concomitant]
     Active Substance: CHOLECALCIFEROL
  5. MULTIPLE VITAMINS [Concomitant]
     Active Substance: VITAMINS

REACTIONS (2)
  - Frequent bowel movements [Not Recovered/Not Resolved]
  - Change of bowel habit [Not Recovered/Not Resolved]

NARRATIVE: CASE EVENT DATE: 2008
